FAERS Safety Report 5136833-6 (Version None)
Quarter: 2006Q4

REPORT INFORMATION
  Report Type: 
  Country: None (occurrence: None)
  Receive Date: 20061023
  Receipt Date: 20061013
  Transmission Date: 20070319
  Serious: Yes (Hospitalization)
  Sender: FDA-Public Use
  Company Number: 148680ISR

PATIENT
  Age: 69 Year
  Sex: Male

DRUGS (1)
  1. SIMVASTATIN [Suspect]
     Indication: HYPERCHOLESTEROLAEMIA
     Dosage: 40 MG (10 MG, 4 IN 1 D)

REACTIONS (6)
  - DIZZINESS [None]
  - FALL [None]
  - FATIGUE [None]
  - GLYCOGEN STORAGE DISEASE TYPE V [None]
  - LOSS OF CONSCIOUSNESS [None]
  - MYOSITIS [None]
